FAERS Safety Report 24365331 (Version 11)
Quarter: 2025Q1

REPORT INFORMATION
  Report Type: Report from Study
  Country: CA (occurrence: CA)
  Receive Date: 20240926
  Receipt Date: 20250304
  Transmission Date: 20250409
  Serious: Yes (Hospitalization)
  Sender: CSL BEHRING
  Company Number: CA-BEH-2024176404

PATIENT
  Age: 60 Year
  Sex: Female
  Weight: 62 kg

DRUGS (9)
  1. HIZENTRA [Suspect]
     Active Substance: HUMAN IMMUNOGLOBULIN G
     Indication: Secondary immunodeficiency
     Dosage: 6 G, QW
     Route: 065
     Dates: start: 20240716
  2. HIZENTRA [Suspect]
     Active Substance: HUMAN IMMUNOGLOBULIN G
     Dosage: 6 G, QW
     Route: 065
  3. HIZENTRA [Suspect]
     Active Substance: HUMAN IMMUNOGLOBULIN G
     Route: 058
     Dates: start: 20240805
  4. HIZENTRA [Suspect]
     Active Substance: HUMAN IMMUNOGLOBULIN G
     Dosage: 6 G, QW
     Route: 065
     Dates: start: 20240716
  5. HIZENTRA [Suspect]
     Active Substance: HUMAN IMMUNOGLOBULIN G
     Dosage: 6 G, QW
     Route: 065
  6. HIZENTRA [Suspect]
     Active Substance: HUMAN IMMUNOGLOBULIN G
     Route: 058
  7. AMLODIPINE [Concomitant]
     Active Substance: AMLODIPINE BESYLATE
  8. METOPROLOL [Concomitant]
     Active Substance: METOPROLOL
  9. AMLODIPINE BESYLATE [Concomitant]
     Active Substance: AMLODIPINE BESYLATE

REACTIONS (42)
  - Pneumonia [Unknown]
  - Musculoskeletal chest pain [Unknown]
  - Hospitalisation [Unknown]
  - Injection site swelling [Recovered/Resolved]
  - Product contamination [Recovered/Resolved]
  - Pain [Recovered/Resolved]
  - Productive cough [Recovered/Resolved]
  - Sensitive skin [Recovered/Resolved]
  - Malaise [Unknown]
  - Chest discomfort [Unknown]
  - Chest pain [Unknown]
  - Headache [Unknown]
  - Dizziness [Unknown]
  - Pyrexia [Unknown]
  - Photopsia [Unknown]
  - Diarrhoea [Unknown]
  - Vomiting [Recovered/Resolved]
  - Migraine [Unknown]
  - Injection site pruritus [Recovered/Resolved]
  - Headache [Unknown]
  - Injection site pruritus [Unknown]
  - Injection site pruritus [Unknown]
  - Inadequate aseptic technique in use of product [Unknown]
  - Therapy interrupted [Unknown]
  - Therapy interrupted [Unknown]
  - Therapy change [Unknown]
  - Dyspnoea exertional [Unknown]
  - Painful respiration [Unknown]
  - Therapy interrupted [Unknown]
  - Influenza [Unknown]
  - Sputum discoloured [Unknown]
  - Cough [Unknown]
  - Therapy interrupted [Unknown]
  - Injection site pain [Unknown]
  - Injection site erythema [Unknown]
  - Injection site hyperaesthesia [Unknown]
  - Injection site induration [Unknown]
  - Injection site oedema [Unknown]
  - Injection site pruritus [Unknown]
  - Diarrhoea [Unknown]
  - Injection site pruritus [Unknown]
  - Injection site induration [Unknown]

NARRATIVE: CASE EVENT DATE: 20240701
